FAERS Safety Report 12850348 (Version 2)
Quarter: 2016Q4

REPORT INFORMATION
  Report Type: Spontaneous
  Country: US (occurrence: US)
  Receive Date: 20161014
  Receipt Date: 20161209
  Transmission Date: 20170207
  Serious: Yes (Other)
  Sender: FDA-Public Use
  Company Number: US-BRISTOL-MYERS SQUIBB COMPANY-BMS-2016-084062

PATIENT
  Sex: Male

DRUGS (1)
  1. OPDIVO [Suspect]
     Active Substance: NIVOLUMAB
     Indication: RENAL CELL CARCINOMA STAGE IV
     Dosage: 240 MG, Q2WK
     Route: 042
     Dates: start: 201509, end: 201610

REACTIONS (10)
  - Cryotherapy [Unknown]
  - Fatigue [Unknown]
  - Blood iron decreased [Unknown]
  - Blood testosterone decreased [Unknown]
  - Pneumonitis [Recovered/Resolved]
  - Adrenal disorder [Recovered/Resolved]
  - Lymphadenopathy [Unknown]
  - Lung disorder [Unknown]
  - Thyroid disorder [Recovered/Resolved]
  - Tooth disorder [Unknown]
